FAERS Safety Report 11100491 (Version 1)
Quarter: 2015Q2

REPORT INFORMATION
  Report Type: Spontaneous
  Country: US (occurrence: None)
  Receive Date: 20150506
  Receipt Date: 20150506
  Transmission Date: 20150821
  Serious: Yes (Hospitalization)
  Sender: FDA-Public Use
  Company Number: PR 8137

PATIENT
  Age: 50 Year
  Sex: Male

DRUGS (1)
  1. ZIOPTAN [Suspect]
     Active Substance: TAFLUPROST
     Indication: GLAUCOMA
     Dosage: 1 GTT, QD, IN BOTH EYES
     Dates: start: 20131217

REACTIONS (2)
  - Primary hyperaldosteronism [None]
  - Sleep apnoea syndrome [None]
